FAERS Safety Report 5514909-9 (Version None)
Quarter: 2007Q4

REPORT INFORMATION
  Report Type: 
  Country: None (occurrence: None)
  Receive Date: 20071113
  Receipt Date: 20060928
  Transmission Date: 20080405
  Serious: No
  Sender: FDA-Public Use
  Company Number: A0621864A

PATIENT
  Sex: Male

DRUGS (2)
  1. COREG [Suspect]
     Indication: CARDIAC FAILURE
     Dosage: 25MG TWICE PER DAY
  2. COUMADIN [Concomitant]
     Dosage: 10MG PER DAY
     Route: 048
     Dates: start: 19800101

REACTIONS (2)
  - CHEST PAIN [None]
  - DIZZINESS [None]
